FAERS Safety Report 13306708 (Version 1)
Quarter: 2017Q1

REPORT INFORMATION
  Report Type: Spontaneous
  Country: US (occurrence: US)
  Receive Date: 20170308
  Receipt Date: 20170308
  Transmission Date: 20170428
  Serious: No
  Sender: FDA-Public Use
  Company Number: US-AKORN PHARMACEUTICALS-2016AKN00915

PATIENT
  Sex: Female
  Weight: 46.71 kg

DRUGS (4)
  1. MYORISAN [Suspect]
     Active Substance: ISOTRETINOIN
     Indication: ACNE CYSTIC
     Dosage: UNK, 3X/WEEK
     Route: 048
     Dates: start: 201601, end: 2016
  2. MYORISAN [Suspect]
     Active Substance: ISOTRETINOIN
     Dosage: UNK, 5X/WEEK
     Route: 048
     Dates: start: 2016, end: 2016
  3. MYORISAN [Suspect]
     Active Substance: ISOTRETINOIN
     Dosage: UNK, 1X/DAY
     Route: 048
     Dates: start: 2016, end: 201609
  4. QVAR [Concomitant]
     Active Substance: BECLOMETHASONE DIPROPIONATE

REACTIONS (7)
  - Pharyngeal oedema [Recovered/Resolved]
  - Swelling face [Recovered/Resolved]
  - Skin swelling [Recovered/Resolved]
  - Lip swelling [Recovered/Resolved]
  - Temperature intolerance [Recovered/Resolved]
  - Erythema [Recovered/Resolved]
  - Swollen tongue [Recovered/Resolved]

NARRATIVE: CASE EVENT DATE: 2016
